FAERS Safety Report 19978918 (Version 1)
Quarter: 2021Q4

REPORT INFORMATION
  Report Type: Spontaneous
  Country: US (occurrence: US)
  Receive Date: 20211020
  Receipt Date: 20211020
  Transmission Date: 20220304
  Serious: No
  Sender: FDA-Public Use
  Company Number: US-PFIZER INC-202101140493

PATIENT
  Age: 62 Year
  Sex: Female

DRUGS (3)
  1. XELJANZ XR [Suspect]
     Active Substance: TOFACITINIB CITRATE
     Dosage: 11 MG
     Dates: start: 20210823
  2. XELJANZ XR [Suspect]
     Active Substance: TOFACITINIB CITRATE
     Dosage: 11 MG
     Dates: start: 20210824, end: 2021
  3. XELJANZ XR [Suspect]
     Active Substance: TOFACITINIB CITRATE
     Dosage: 11 MG
     Dates: start: 20210828, end: 20210908

REACTIONS (10)
  - Drug ineffective [Unknown]
  - Malaise [Unknown]
  - Dysphagia [Unknown]
  - Urinary tract infection [Unknown]
  - Fungal infection [Unknown]
  - Rash [Not Recovered/Not Resolved]
  - Oropharyngeal pain [Unknown]
  - Eye irritation [Unknown]
  - Fungal skin infection [Unknown]
  - Feeling abnormal [Unknown]

NARRATIVE: CASE EVENT DATE: 20210101
